FAERS Safety Report 6464508-X (Version None)
Quarter: 2009Q4

REPORT INFORMATION
  Report Type: 
  Country: None (occurrence: None)
  Receive Date: 20091201
  Receipt Date: 20091121
  Transmission Date: 20100525
  Serious: Yes (Other)
  Sender: FDA-Public Use
  Company Number: NZ-PFIZER INC-2009280011

PATIENT
  Age: 18 Year
  Sex: Male

DRUGS (2)
  1. ZELDOX [Suspect]
     Indication: MAJOR DEPRESSION
     Dosage: 80MG + 40MG
  2. ZELDOX [Suspect]
     Dosage: 40 MG, 2X/DAY

REACTIONS (3)
  - DYSTONIA [None]
  - HYPERSENSITIVITY [None]
  - SWOLLEN TONGUE [None]
